FAERS Safety Report 25411318 (Version 3)
Quarter: 2025Q3

REPORT INFORMATION
  Report Type: Report from Study
  Country: US (occurrence: US)
  Receive Date: 20250609
  Receipt Date: 20250901
  Transmission Date: 20251021
  Serious: Yes (Other)
  Sender: BIOVITRUM
  Company Number: US-BIOVITRUM-2025-US-001909

PATIENT
  Age: 73 Year
  Sex: Male

DRUGS (1)
  1. DOPTELET [Suspect]
     Active Substance: AVATROMBOPAG MALEATE
     Indication: Thrombocytopenia
     Route: 048
     Dates: start: 20250110

REACTIONS (6)
  - Emotional disorder [Unknown]
  - Extrasystoles [Unknown]
  - Dyspnoea [Unknown]
  - COVID-19 [Unknown]
  - Platelet count decreased [Unknown]
  - Drug ineffective [Unknown]
